FAERS Safety Report 23107994 (Version 2)
Quarter: 2024Q2

REPORT INFORMATION
  Report Type: Spontaneous
  Country: AU (occurrence: AU)
  Receive Date: 20231026
  Receipt Date: 20240419
  Transmission Date: 20240716
  Serious: Yes (Hospitalization, Other)
  Sender: FDA-Public Use
  Company Number: AU-BoehringerIngelheim-2023-BI-268919

PATIENT
  Age: 71 Year
  Sex: Female

DRUGS (1)
  1. PRAMIPEXOLE [Suspect]
     Active Substance: PRAMIPEXOLE\PRAMIPEXOLE DIHYDROCHLORIDE
     Indication: Product used for unknown indication
     Dates: end: 202301

REACTIONS (8)
  - Fall [Unknown]
  - Psychotic disorder [Recovered/Resolved]
  - Seizure [Unknown]
  - Delirium [Recovering/Resolving]
  - Hallucination [Recovering/Resolving]
  - Paranoia [Recovering/Resolving]
  - Hallucination [Unknown]
  - Paranoia [Unknown]

NARRATIVE: CASE EVENT DATE: 20230313
